FAERS Safety Report 13739177 (Version 1)
Quarter: 2017Q3

REPORT INFORMATION
  Report Type: Report from Study
  Country: US (occurrence: US)
  Receive Date: 20170710
  Receipt Date: 20170710
  Transmission Date: 20171127
  Serious: No
  Sender: FDA-Public Use
  Company Number: US-SAOL THERAPEUTICS-2017SAO00407

PATIENT
  Age: 58 Year
  Sex: Female

DRUGS (4)
  1. BACLOFEN. [Suspect]
     Active Substance: BACLOFEN
     Dosage: 13.361 ?G, \DAY
     Dates: start: 20141117
  2. HYDROMORPHONE [Suspect]
     Active Substance: HYDROMORPHONE
     Dosage: 3.501 MG, \DAY
     Route: 037
     Dates: start: 20141112, end: 20141117
  3. HYDROMORPHONE [Suspect]
     Active Substance: HYDROMORPHONE
     Dosage: 2.672 MG, \DAY
     Dates: start: 20141117
  4. BACLOFEN. [Suspect]
     Active Substance: BACLOFEN
     Dosage: 17.503 ?G, \DAY
     Route: 037
     Dates: start: 20141112, end: 20141117

REACTIONS (1)
  - Pain [Recovered/Resolved]

NARRATIVE: CASE EVENT DATE: 20141117
